FAERS Safety Report 5535296-6 (Version None)
Quarter: 2007Q4

REPORT INFORMATION
  Report Type: 
  Country: None (occurrence: None)
  Receive Date: 20071206
  Receipt Date: 20071126
  Transmission Date: 20080405
  Serious: Yes (Life-Threatening)
  Sender: FDA-Public Use
  Company Number: JP-TYCO HEALTHCARE/MALLINCKRODT-T200701409

PATIENT

DRUGS (5)
  1. OPTIRAY 300 [Suspect]
     Indication: COMPUTERISED TOMOGRAM ABDOMEN
     Dosage: 100 ML, SINGLE
     Route: 042
     Dates: start: 20071114, end: 20071114
  2. RABEPRAZOLE SODIUM [Concomitant]
     Indication: DUODENAL ULCER HAEMORRHAGE
     Dosage: 1 TAB BID
     Route: 048
     Dates: start: 20071113
  3. AZULENE SODIUM SULFONATE [Concomitant]
     Indication: DUODENAL ULCER HAEMORRHAGE
     Dosage: ONE PACK TID
     Route: 048
     Dates: start: 20071113
  4. DOMPERIDONE [Concomitant]
     Indication: DUODENAL ULCER HAEMORRHAGE
     Dosage: 1 TAB TID
     Route: 048
     Dates: start: 20071113
  5. ALUMINIUM HYDROXIDE W/ MAGNESIUM HYDROXIDE [Concomitant]
     Indication: DUODENAL ULCER HAEMORRHAGE
     Dosage: 30 ML, UNK
     Route: 048
     Dates: start: 20071113

REACTIONS (3)
  - FEELING ABNORMAL [None]
  - MICTURITION URGENCY [None]
  - SHOCK [None]
